FAERS Safety Report 25799386 (Version 1)
Quarter: 2025Q3

REPORT INFORMATION
  Report Type: Spontaneous
  Country: TN (occurrence: TN)
  Receive Date: 20250913
  Receipt Date: 20250913
  Transmission Date: 20251021
  Serious: Yes (Other)
  Sender: Medicap Laboratories
  Company Number: TN-Medicap-000050

PATIENT
  Age: 64 Year
  Sex: Female

DRUGS (2)
  1. INSULIN NOS [Concomitant]
     Active Substance: INSULIN NOS
     Indication: Type 2 diabetes mellitus
     Route: 065
  2. METFORMIN [Suspect]
     Active Substance: METFORMIN HYDROCHLORIDE
     Indication: Type 2 diabetes mellitus
     Route: 065

REACTIONS (4)
  - Dementia [Recovered/Resolved]
  - Petit mal epilepsy [Recovered/Resolved]
  - Microcytic anaemia [Recovered/Resolved]
  - Vitamin B12 deficiency [Recovered/Resolved]
